FAERS Safety Report 18254486 (Version 3)
Quarter: 2021Q1

REPORT INFORMATION
  Report Type: Spontaneous
  Country: US (occurrence: US)
  Receive Date: 20200910
  Receipt Date: 20210113
  Transmission Date: 20210419
  Serious: No
  Sender: FDA-Public Use
  Company Number: US-PFIZER INC-2020347990

PATIENT
  Age: 73 Year
  Sex: Female
  Weight: 77.56 kg

DRUGS (2)
  1. ANASTROZOLE. [Concomitant]
     Active Substance: ANASTROZOLE
     Dosage: UNK
  2. IBRANCE [Suspect]
     Active Substance: PALBOCICLIB
     Indication: BREAST CANCER METASTATIC
     Dosage: 125 MG, CYCLIC ((ONCE DAILY FOR 21 DAYS THEN OFF 7 DAYS AND THEN START BACK 21 DAYS)
     Route: 048
     Dates: start: 20201105

REACTIONS (7)
  - Dysstasia [Unknown]
  - Back pain [Unknown]
  - Bradykinesia [Unknown]
  - Breast pain [Unknown]
  - Pain [Recovering/Resolving]
  - Malaise [Unknown]
  - Musculoskeletal chest pain [Unknown]

NARRATIVE: CASE EVENT DATE: 202011
